FAERS Safety Report 9421431 (Version 2)
Quarter: 2015Q4

REPORT INFORMATION
  Report Type: Spontaneous
  Country: US (occurrence: US)
  Receive Date: 20130726
  Receipt Date: 20151013
  Transmission Date: 20160305
  Serious: Yes (Other)
  Sender: FDA-Public Use
  Company Number: US-009507513-1307USA013012

PATIENT
  Sex: Male
  Weight: 134.24 kg

DRUGS (10)
  1. PEGASYS [Suspect]
     Active Substance: PEGINTERFERON ALFA-2A
     Dosage: 1 IN 1 WEEK
     Route: 065
     Dates: start: 201210
  2. COPEGUS [Suspect]
     Active Substance: RIBAVIRIN
     Dosage: 400 MG, 1 IN 1 D (200 MG EVERY AM AND 200 MG EVERY PM)
     Route: 048
  3. COPEGUS [Suspect]
     Active Substance: RIBAVIRIN
     Indication: CHRONIC HEPATITIS C
     Dosage: 600 MG, 1 IN 1 D (200 MG EVERY AM AND 400 MG EVERY PM)
     Route: 048
     Dates: start: 201110
  4. VICTRELIS [Suspect]
     Active Substance: BOCEPREVIR
     Indication: CHRONIC HEPATITIS C
     Dosage: 6 (ALSO REPORTED AS 8) UNIT NOT PROVIDED, 1 IN 8 HR
     Route: 065
  5. HYDROCHLOROTHIAZIDE. [Concomitant]
     Active Substance: HYDROCHLOROTHIAZIDE
     Indication: HYPERTENSION
     Dosage: 25 MG
  6. PEGASYS [Suspect]
     Active Substance: PEGINTERFERON ALFA-2A
     Indication: CHRONIC HEPATITIS C
     Dosage: 180 MICROGRAM, QD
     Route: 058
     Dates: start: 201110
  7. VERAPAMIL [Concomitant]
     Active Substance: VERAPAMIL HYDROCHLORIDE
     Dosage: UNK
  8. COPEGUS [Suspect]
     Active Substance: RIBAVIRIN
     Dosage: 1000 MG, 1 IN 1 D (400 MG EVERY AM AND 600 MG EVERY PM)
     Route: 048
  9. COPEGUS [Suspect]
     Active Substance: RIBAVIRIN
     Dosage: 1200 MG, 1 IN 1 D (600 MG EVERY AM AND 600 MG EVERY PM)
     Route: 048
  10. ATENOLOL. [Concomitant]
     Active Substance: ATENOLOL
     Indication: HYPERTENSION
     Dosage: 1 UNIT NOT REPORTED, 1 IN 1 D
     Dates: start: 20130702

REACTIONS (20)
  - Anaemia [Recovering/Resolving]
  - Heart rate decreased [Unknown]
  - Pain [Recovering/Resolving]
  - Haemorrhoids [Not Recovered/Not Resolved]
  - Skin burning sensation [Not Recovered/Not Resolved]
  - Tooth loss [Not Recovered/Not Resolved]
  - Weight decreased [Recovering/Resolving]
  - Asthenia [Recovering/Resolving]
  - Dizziness [Recovering/Resolving]
  - Gastric disorder [Not Recovered/Not Resolved]
  - Amnesia [Recovering/Resolving]
  - Constipation [Not Recovered/Not Resolved]
  - Blindness [Recovering/Resolving]
  - Feeling abnormal [Recovering/Resolving]
  - Diarrhoea [Not Recovered/Not Resolved]
  - Dry mouth [Not Recovered/Not Resolved]
  - Vomiting [Not Recovered/Not Resolved]
  - Discomfort [Not Recovered/Not Resolved]
  - Insomnia [Recovering/Resolving]
  - Feeling jittery [Recovering/Resolving]
